FAERS Safety Report 12369888 (Version 1)
Quarter: 2016Q2

REPORT INFORMATION
  Report Type: Spontaneous
  Country: FR (occurrence: FR)
  Receive Date: 20160516
  Receipt Date: 20160516
  Transmission Date: 20160815
  Serious: Yes (Death)
  Sender: FDA-Public Use
  Company Number: FR-INCYTE CORPORATION-2016IN002722

PATIENT
  Sex: Female
  Weight: 75.2 kg

DRUGS (1)
  1. JAKAFI [Suspect]
     Active Substance: RUXOLITINIB
     Indication: MYELOFIBROSIS
     Dosage: 20 MG, BID (20 MG IN MORNING AND EVENING)
     Route: 048
     Dates: end: 20151202

REACTIONS (3)
  - Hepatitis infectious mononucleosis [Fatal]
  - Epstein-Barr virus infection [Fatal]
  - Epstein-Barr viraemia [Fatal]
